FAERS Safety Report 13669297 (Version 1)
Quarter: 2017Q2

REPORT INFORMATION
  Report Type: Report from Study
  Country: JP (occurrence: JP)
  Receive Date: 20170620
  Receipt Date: 20170620
  Transmission Date: 20170830
  Serious: Yes (Other)
  Sender: FDA-Public Use
  Company Number: PHJP2017JP019473

PATIENT
  Sex: Male

DRUGS (17)
  1. ONEALFA [Concomitant]
     Active Substance: ALFACALCIDOL
     Indication: PRODUCT USED FOR UNKNOWN INDICATION
     Dosage: 1 MG, QD
     Route: 048
     Dates: end: 20130610
  2. LOXOPROFEN [Concomitant]
     Active Substance: LOXOPROFEN
     Indication: MUCKLE-WELLS SYNDROME
     Dosage: 60 MG, QD
     Route: 048
     Dates: start: 20140715, end: 20140722
  3. SELBEX [Concomitant]
     Active Substance: TEPRENONE
     Indication: PRODUCT USED FOR UNKNOWN INDICATION
     Dosage: 150 MG, UNK
     Route: 048
     Dates: end: 20141118
  4. PREDONINE [Concomitant]
     Active Substance: PREDNISOLONE
     Dosage: 10 MG, UNK
     Route: 048
     Dates: end: 20130506
  5. PREDONINE [Concomitant]
     Active Substance: PREDNISOLONE
     Dosage: 9 MG, UNK
     Route: 048
     Dates: start: 20130507
  6. PREDNISOLONE. [Concomitant]
     Active Substance: PREDNISOLONE
     Indication: MUCKLE-WELLS SYNDROME
     Dosage: 4 MG, QD
     Route: 048
     Dates: start: 20140617
  7. ILARIS [Suspect]
     Active Substance: CANAKINUMAB
     Indication: CRYOPYRIN ASSOCIATED PERIODIC SYNDROME
     Dosage: UNK
     Route: 058
  8. PREDONINE [Concomitant]
     Active Substance: PREDNISOLONE
     Dosage: 6 MG, UNK
     Route: 048
     Dates: end: 20130310
  9. TACROLIMUS. [Concomitant]
     Active Substance: TACROLIMUS
     Indication: MUCKLE-WELLS SYNDROME
     Route: 048
  10. CELLCEPT [Concomitant]
     Active Substance: MYCOPHENOLATE MOFETIL\MYCOPHENOLATE MOFETIL HYDROCHLORIDE
     Indication: MUCKLE-WELLS SYNDROME
     Route: 048
  11. IMURAN [Concomitant]
     Active Substance: AZATHIOPRINE
     Indication: MUCKLE-WELLS SYNDROME
     Route: 048
  12. MOHRUS [Concomitant]
     Active Substance: KETOPROFEN
     Indication: MUCKLE-WELLS SYNDROME
     Dosage: 20 MG, UNK
     Route: 065
     Dates: start: 20130711
  13. PREDONINE [Concomitant]
     Active Substance: PREDNISOLONE
     Dosage: 5 MG, UNK
     Route: 048
     Dates: start: 20140311, end: 20140616
  14. LOXOPROFEN [Concomitant]
     Active Substance: LOXOPROFEN
     Dosage: 180 MG, QD
     Route: 048
     Dates: start: 20140812, end: 20141015
  15. LEFLUNOMIDE. [Concomitant]
     Active Substance: LEFLUNOMIDE
     Indication: MUCKLE-WELLS SYNDROME
     Route: 048
  16. PREDONINE [Concomitant]
     Active Substance: PREDNISOLONE
     Indication: MUCKLE-WELLS SYNDROME
     Route: 048
  17. NEXIUM 1-2-3 [Concomitant]
     Active Substance: AMOXICILLIN\CLARITHROMYCIN\ESOMEPRAZOLE
     Indication: PRODUCT USED FOR UNKNOWN INDICATION
     Dosage: 20 MG, QD
     Route: 048

REACTIONS (3)
  - Intraocular pressure increased [Unknown]
  - Auditory disorder [Unknown]
  - Angle closure glaucoma [Unknown]
